FAERS Safety Report 17455814 (Version 2)
Quarter: 2020Q1

REPORT INFORMATION
  Report Type: Report from Study
  Country: DE (occurrence: DE)
  Receive Date: 20200225
  Receipt Date: 20200228
  Transmission Date: 20200409
  Serious: Yes (Hospitalization)
  Sender: FDA-Public Use
  Company Number: DE-ROCHE-2552018

PATIENT
  Age: 66 Year
  Sex: Male
  Weight: 76 kg

DRUGS (3)
  1. ATEZOLIZUMAB. [Suspect]
     Active Substance: ATEZOLIZUMAB
     Indication: MALIGNANT MELANOMA
     Dosage: MOST RECENT DOSE OF ATEZOLIZUMAB ADMINISTERED PRIOR TO ONSET OF DIARRHEA AND PANCREATITIS: 07/JAN/20
     Route: 041
     Dates: start: 20191126
  2. VEMURAFENIB. [Suspect]
     Active Substance: VEMURAFENIB
     Indication: MALIGNANT MELANOMA
     Dosage: MOST RECENT DOSE ADMINISTERED PRIOR TO ONSET OF DIARRHEA AND PANCREATITIS: 13/FEB/2020
     Route: 048
     Dates: start: 20191029
  3. COBIMETINIB. [Suspect]
     Active Substance: COBIMETINIB
     Indication: MALIGNANT MELANOMA
     Dosage: MOST RECENT DOSE OF COBIMETINIB PRIOR TO ONSET OF DIARRHEA AND PANCREATITIS: 10/FEB/2020
     Route: 048
     Dates: start: 20191029

REACTIONS (2)
  - Diarrhoea [Recovered/Resolved]
  - Pancreatitis [Recovering/Resolving]

NARRATIVE: CASE EVENT DATE: 20200214
